FAERS Safety Report 5742198-9 (Version None)
Quarter: 2008Q2

REPORT INFORMATION
  Report Type: 
  Country: None (occurrence: None)
  Receive Date: 20080515
  Receipt Date: 20080430
  Transmission Date: 20081010
  Serious: Yes (Disabling)
  Sender: FDA-Public Use
  Company Number: APP200800119

PATIENT
  Age: 18 Year
  Sex: Male
  Weight: 81.6475 kg

DRUGS (6)
  1. SENSORCAINE [Suspect]
     Indication: MUSCULOSKELETAL PAIN
     Dosage: 30 ML, INJECTION, 40 ML, INJECTION, 100 ML, CONTINUOUS VIA PAIN PUMP
     Dates: start: 20050923, end: 20050923
  2. SENSORCAINE [Suspect]
     Indication: MUSCULOSKELETAL PAIN
     Dosage: 30 ML, INJECTION, 40 ML, INJECTION, 100 ML, CONTINUOUS VIA PAIN PUMP
     Dates: start: 20060223, end: 20060223
  3. SENSORCAINE [Suspect]
     Indication: MUSCULOSKELETAL PAIN
     Dosage: 30 ML, INJECTION, 40 ML, INJECTION, 100 ML, CONTINUOUS VIA PAIN PUMP
     Dates: start: 20060223
  4. SENSORCAINE [Suspect]
     Indication: MUSCULOSKELETAL PAIN
     Dosage: 100 ML, CONTINUOUS VIA PAIN PUMP
     Dates: start: 20050923
  5. DONJOY PAIN PUMP [Suspect]
     Indication: MUSCULOSKELETAL PAIN
     Dates: start: 20050923
  6. LACTATED RINGERS     (FLEBOBAG RING LACT) [Concomitant]

REACTIONS (4)
  - CHONDROLYSIS [None]
  - JOINT INSTABILITY [None]
  - MOVEMENT DISORDER [None]
  - MUSCULOSKELETAL PAIN [None]
